FAERS Safety Report 7518021-9 (Version None)
Quarter: 2011Q2

REPORT INFORMATION
  Report Type: 
  Country: None (occurrence: None)
  Receive Date: 20110602
  Receipt Date: 20110526
  Transmission Date: 20111010
  Serious: Yes (Life-Threatening, Hospitalization, Other)
  Sender: FDA-Public Use
  Company Number: US-JNJFOC-20110512392

PATIENT
  Sex: Female
  Weight: 54.43 kg

DRUGS (4)
  1. CLONAZEPAM [Concomitant]
     Indication: MUSCLE RELAXANT THERAPY
     Route: 048
     Dates: start: 19910101
  2. DURAGESIC-100 [Suspect]
     Indication: PAIN
     Route: 062
     Dates: start: 20000101, end: 20090101
  3. DURAGESIC-100 [Suspect]
     Route: 062
     Dates: start: 20090101, end: 20090101
  4. CLONAZEPAM [Concomitant]
     Indication: ANXIETY
     Route: 048
     Dates: start: 19910101

REACTIONS (18)
  - ANXIETY [None]
  - MUSCLE SPASMS [None]
  - COMA [None]
  - RESPIRATORY FAILURE [None]
  - CEREBRAL THROMBOSIS [None]
  - DYSPNOEA [None]
  - MUSCLE TIGHTNESS [None]
  - CONSTIPATION [None]
  - RESPIRATORY ARREST [None]
  - HYPERAESTHESIA [None]
  - HYPERSENSITIVITY [None]
  - FLUID RETENTION [None]
  - GASTROOESOPHAGEAL REFLUX DISEASE [None]
  - ALLERGY TO CHEMICALS [None]
  - INADEQUATE ANALGESIA [None]
  - OSTEOPOROSIS [None]
  - FEELING ABNORMAL [None]
  - PAIN [None]
